FAERS Safety Report 5474665-X (Version None)
Quarter: 2007Q3

REPORT INFORMATION
  Report Type: 
  Country: None (occurrence: None)
  Receive Date: 20070831
  Receipt Date: 20070104
  Transmission Date: 20080115
  Serious: No
  Sender: FDA-Public Use
  Company Number: 259777

PATIENT

DRUGS (1)
  1. NOVOLIN N [Suspect]
     Indication: DIABETES MELLITUS
     Dosage: 150 IU, SINGLE,

REACTIONS (2)
  - BLOOD GLUCOSE DECREASED [None]
  - INCORRECT DOSE ADMINISTERED [None]
